FAERS Safety Report 9216750 (Version 2)
Quarter: 2013Q2

REPORT INFORMATION
  Report Type: Spontaneous
  Country: JP (occurrence: JP)
  Receive Date: 20130408
  Receipt Date: 20130408
  Transmission Date: 20140414
  Serious: Yes (Other)
  Sender: FDA-Public Use
  Company Number: JP-PFIZER INC-2013107248

PATIENT
  Age: 75 Year
  Sex: Female

DRUGS (5)
  1. LIPITOR [Suspect]
     Dosage: 5 MG, 1X/DAY
     Route: 048
  2. SODIUM CHONDROITIN SULFATE [Suspect]
     Dosage: UNK
     Route: 065
  3. SODIUM CHONDROITIN SULFATE [Suspect]
     Dosage: UNK
     Route: 065
  4. SODIUM CHONDROITIN SULFATE [Suspect]
     Dosage: UNK
     Route: 065
  5. THYRADIN [Concomitant]
     Dosage: UNK

REACTIONS (5)
  - Haemorrhagic diathesis [Recovered/Resolved]
  - Pain in extremity [Recovered/Resolved]
  - Injury [None]
  - Laceration [None]
  - Pain in extremity [None]
